FAERS Safety Report 17833965 (Version 4)
Quarter: 2020Q3

REPORT INFORMATION
  Report Type: Report from Study
  Country: FR (occurrence: FR)
  Receive Date: 20200528
  Receipt Date: 20200820
  Transmission Date: 20201103
  Serious: Yes (Death, Hospitalization, Other)
  Sender: FDA-Public Use
  Company Number: NVSC2020FR145412

PATIENT
  Sex: Male
  Weight: 82 kg

DRUGS (2)
  1. MEKINIST [Suspect]
     Active Substance: TRAMETINIB DIMETHYL SULFOXIDE
     Indication: METASTATIC MALIGNANT MELANOMA
     Dosage: 2 MG, UNKNOWN
     Route: 048
     Dates: start: 20200313, end: 20200703
  2. DABRAFENIB [Suspect]
     Active Substance: DABRAFENIB
     Indication: METASTATIC MALIGNANT MELANOMA
     Dosage: 300 MG, UNKNOWN
     Route: 048
     Dates: start: 20200313, end: 20200703

REACTIONS (4)
  - Metastatic malignant melanoma [Fatal]
  - Staphylococcal infection [Recovered/Resolved]
  - Malignant neoplasm progression [Fatal]
  - Pyrexia [Unknown]

NARRATIVE: CASE EVENT DATE: 20200515
